FAERS Safety Report 24889441 (Version 2)
Quarter: 2025Q1

REPORT INFORMATION
  Report Type: Report from Study
  Country: US (occurrence: US)
  Receive Date: 20250127
  Receipt Date: 20250228
  Transmission Date: 20250408
  Serious: Yes (Death)
  Sender: OTSUKA
  Company Number: US-OTSUKA-2025_001845

PATIENT
  Sex: Male
  Weight: 132.9 kg

DRUGS (3)
  1. TOLVAPTAN [Suspect]
     Active Substance: TOLVAPTAN
     Indication: Inappropriate antidiuretic hormone secretion
     Dosage: 60 MG, QD (30 MG TABLETS, TWO TABLETS BY MOUTH ONCE DAILY)
     Route: 048
  2. TOLVAPTAN [Suspect]
     Active Substance: TOLVAPTAN
     Indication: Hyponatraemia
     Dosage: 30 MG, QD
     Route: 065
  3. TOLVAPTAN [Suspect]
     Active Substance: TOLVAPTAN
     Indication: Blood osmolarity decreased

REACTIONS (3)
  - Small cell lung cancer metastatic [Fatal]
  - Metastases to liver [Fatal]
  - Metastases to bone [Fatal]
